FAERS Safety Report 19722778 (Version 1)
Quarter: 2021Q3

REPORT INFORMATION
  Report Type: Spontaneous
  Country: DE (occurrence: DE)
  Receive Date: 20210819
  Receipt Date: 20210819
  Transmission Date: 20211014
  Serious: Yes (Hospitalization, Other)
  Sender: FDA-Public Use
  Company Number: DE-TEVA-2021-DE-1942467

PATIENT
  Age: 77 Year
  Sex: Female
  Weight: 77 kg

DRUGS (9)
  1. METHOTREXATE. [Concomitant]
     Active Substance: METHOTREXATE
     Dosage: 12.5 MG, SCHEME
  2. TRIMIPRAMIN [Suspect]
     Active Substance: TRIMIPRAMINE
     Dosage: 25 MILLIGRAM DAILY; 0?0?0?1
  3. AMISULPRID [Suspect]
     Active Substance: AMISULPRIDE
     Dosage: 50 MILLIGRAM DAILY; 1?0?0?0
  4. RISPERIDON [Suspect]
     Active Substance: RISPERIDONE
     Dosage: 1 MILLIGRAM DAILY; 1?0?1?0
  5. SITAGLIPTIN [Concomitant]
     Active Substance: SITAGLIPTIN
     Dosage: 50 MILLIGRAM DAILY;  1?0?0?0
  6. CALCIUMCARBONAT [Concomitant]
     Dosage: 1 DOSAGE FORMS DAILY; 600|400 IE, 1?0?0?0
  7. PREDNISOLON [Concomitant]
     Active Substance: PREDNISOLONE
     Dosage: 1 MILLIGRAM DAILY;  1?0?0?0
  8. GLIMEPIRID [Concomitant]
     Active Substance: GLIMEPIRIDE
     Dosage: 1 MILLIGRAM DAILY; 1?0?0?0
  9. FOLSAURE [Concomitant]
     Active Substance: FOLIC ACID
     Dosage: 5 MG, SCHEME

REACTIONS (13)
  - Dizziness [Unknown]
  - Abdominal pain [Unknown]
  - Wound [Unknown]
  - Electrocardiogram abnormal [Unknown]
  - Skin irritation [Unknown]
  - Hyperglycaemia [Unknown]
  - Fall [Unknown]
  - Palpitations [Unknown]
  - Jaundice [Unknown]
  - Loss of consciousness [Unknown]
  - Tachycardia [Unknown]
  - Taste disorder [Unknown]
  - Diarrhoea [Unknown]
